FAERS Safety Report 8353850-3 (Version None)
Quarter: 2012Q2

REPORT INFORMATION
  Report Type: 
  Country: None (occurrence: None)
  Receive Date: 20120511
  Receipt Date: 20120106
  Transmission Date: 20120825
  Serious: No
  Sender: FDA-Public Use
  Company Number: US-GLAXOSMITHKLINE-A0960814A

PATIENT
  Age: 54 Year
  Sex: Female
  Weight: 61.4 kg

DRUGS (1)
  1. TYKERB [Suspect]
     Indication: PRODUCT USED FOR UNKNOWN INDICATION
     Dosage: 250MG FOUR TIMES PER DAY
     Route: 048
     Dates: start: 20111216

REACTIONS (3)
  - DECREASED APPETITE [None]
  - SKIN DISORDER [None]
  - DIARRHOEA [None]
